APPROVED DRUG PRODUCT: ETODOLAC
Active Ingredient: ETODOLAC
Strength: 200MG
Dosage Form/Route: CAPSULE;ORAL
Application: A075419 | Product #001 | TE Code: AB
Applicant: APOTEX INC
Approved: Jul 28, 2000 | RLD: No | RS: No | Type: RX